FAERS Safety Report 14949259 (Version 13)
Quarter: 2019Q1

REPORT INFORMATION
  Report Type: Spontaneous
  Country: FR (occurrence: FR)
  Receive Date: 20180529
  Receipt Date: 20190305
  Transmission Date: 20190417
  Serious: Yes (Hospitalization)
  Sender: FDA-Public Use
  Company Number: FR-ROCHE-2130080

PATIENT
  Age: 43 Year
  Sex: Male

DRUGS (7)
  1. VALIUM [Suspect]
     Active Substance: DIAZEPAM
     Indication: INTENTIONAL OVERDOSE
     Route: 065
     Dates: start: 20171106, end: 20171106
  2. VALIUM [Suspect]
     Active Substance: DIAZEPAM
     Indication: ALCOHOL WITHDRAWAL SYNDROME
     Route: 065
  3. IMOVANE [Suspect]
     Active Substance: ZOPICLONE
     Indication: INTENTIONAL OVERDOSE
     Route: 065
  4. QUETIAPINE. [Suspect]
     Active Substance: QUETIAPINE
     Route: 048
  5. QUETIAPINE. [Suspect]
     Active Substance: QUETIAPINE
     Indication: INTENTIONAL OVERDOSE
     Route: 048
     Dates: start: 20171106
  6. IMOVANE [Suspect]
     Active Substance: ZOPICLONE
     Indication: INSOMNIA
     Route: 065
  7. QUETIAPINE. [Suspect]
     Active Substance: QUETIAPINE
     Indication: MENTAL DISORDER
     Route: 048

REACTIONS (12)
  - Altered state of consciousness [Recovered/Resolved]
  - Pneumonia aspiration [Unknown]
  - Confusional state [Recovering/Resolving]
  - Gamma-glutamyltransferase increased [Unknown]
  - Nystagmus [Recovered/Resolved]
  - Toxicity to various agents [Recovering/Resolving]
  - Alcohol poisoning [Unknown]
  - Wernicke^s encephalopathy [Recovered/Resolved]
  - Intentional product misuse [Unknown]
  - Agitation [Recovering/Resolving]
  - Intentional overdose [Unknown]
  - Ataxia [Recovering/Resolving]

NARRATIVE: CASE EVENT DATE: 20171106
